FAERS Safety Report 10043947 (Version 2)
Quarter: 2014Q1

REPORT INFORMATION
  Report Type: Spontaneous
  Country: US (occurrence: US)
  Receive Date: 20140328
  Receipt Date: 20140328
  Transmission Date: 20141002
  Serious: No
  Sender: FDA-Public Use
  Company Number: US-MYLANLABS-2013S1010086

PATIENT
  Age: 63 Year
  Sex: Female
  Weight: 68.95 kg

DRUGS (6)
  1. EMSAM (SELEGILINE TRANSDERMAL SYSTEM) [Suspect]
     Indication: DEPRESSION
     Route: 062
     Dates: start: 20130429
  2. ATIVAN [Concomitant]
  3. PRILOSEC [Concomitant]
  4. OMEPRAZOLE [Concomitant]
     Indication: ABDOMINAL OPERATION
  5. RANITIDINE [Concomitant]
     Indication: ABDOMINAL OPERATION
  6. LIPITOR [Concomitant]
     Indication: BLOOD CHOLESTEROL

REACTIONS (3)
  - Headache [Not Recovered/Not Resolved]
  - Nausea [Not Recovered/Not Resolved]
  - Pruritus [Recovered/Resolved]
